FAERS Safety Report 10006517 (Version 1)
Quarter: 2014Q1

REPORT INFORMATION
  Report Type: Spontaneous
  Country: US (occurrence: US)
  Receive Date: 20140313
  Receipt Date: 20140313
  Transmission Date: 20141002
  Serious: Yes (Hospitalization)
  Sender: FDA-Public Use
  Company Number: US-ENDO PHARMACEUTICALS INC.-PERP20140004

PATIENT
  Age: 85 Year
  Sex: Female

DRUGS (6)
  1. PERPHENAZINE TABLETS 2MG [Suspect]
     Route: 048
  2. HALOPERIDOL TABLETS [Concomitant]
     Indication: MENTAL DISORDER
     Dosage: UNKNOWN
     Route: 048
     Dates: start: 2013, end: 2013
  3. RISPERIDONE TABLETS [Concomitant]
     Indication: MENTAL DISORDER
     Dosage: UNKNOWN
     Route: 048
     Dates: start: 2013, end: 2013
  4. TRAZODONE HYDROCHLORIDE TABLETS [Concomitant]
     Indication: MENTAL DISORDER
     Dosage: UNKNOWN
     Route: 048
     Dates: start: 2013, end: 2013
  5. VENLAFAXINE HCL TABLETS [Concomitant]
     Indication: PRODUCT USED FOR UNKNOWN INDICATION
     Dosage: UNKNOWN
     Route: 048
  6. BLOOD PRESSURE MEDICATION [Concomitant]
     Indication: HYPERTENSION
     Dosage: UNKNOWN
     Route: 065

REACTIONS (5)
  - Urinary tract infection [Recovered/Resolved]
  - Tremor [Recovered/Resolved]
  - Schizophrenia [Recovered/Resolved]
  - Weight decreased [Not Recovered/Not Resolved]
  - Adverse event [Not Recovered/Not Resolved]
